FAERS Safety Report 5773676-4 (Version None)
Quarter: 2008Q2

REPORT INFORMATION
  Report Type: 
  Country: None (occurrence: None)
  Receive Date: 20080616
  Receipt Date: 20080509
  Transmission Date: 20081010
  Serious: Yes (Other)
  Sender: FDA-Public Use
  Company Number: BR-BAYER-200814831LA

PATIENT
  Age: 38 Year
  Sex: Female
  Weight: 56 kg

DRUGS (2)
  1. MIRENA [Suspect]
     Indication: CONTRACEPTION
     Route: 015
     Dates: start: 20070717
  2. FAMOX [Concomitant]
     Indication: GASTRITIS
     Route: 048
     Dates: start: 20070711, end: 20070718

REACTIONS (18)
  - ABDOMINAL DISTENSION [None]
  - ABDOMINAL PAIN UPPER [None]
  - ACNE [None]
  - ASTHENIA [None]
  - BACK PAIN [None]
  - CHEST PAIN [None]
  - CHILLS [None]
  - DIZZINESS [None]
  - EAR DISCOMFORT [None]
  - GASTROINTESTINAL CANDIDIASIS [None]
  - HEADACHE [None]
  - MENORRHAGIA [None]
  - NAUSEA [None]
  - OVARIAN CYST [None]
  - PREMATURE MENOPAUSE [None]
  - TREMOR [None]
  - VISION BLURRED [None]
  - WHITE BLOOD CELL COUNT DECREASED [None]
